FAERS Safety Report 13024172 (Version 2)
Quarter: 2016Q4

REPORT INFORMATION
  Report Type: Spontaneous
  Country: US (occurrence: US)
  Receive Date: 20161213
  Receipt Date: 20161221
  Transmission Date: 20170207
  Serious: No
  Sender: FDA-Public Use
  Company Number: US-PFIZER INC-2016574755

PATIENT
  Age: 45 Year
  Sex: Female

DRUGS (2)
  1. LYRICA [Suspect]
     Active Substance: PREGABALIN
     Indication: NEURALGIA
     Dosage: 150MG 1 CAPSULE IN THE MORNING AND 2 CAPSULES BEFORE BED AT NIGHT
     Route: 048
     Dates: start: 2008
  2. LYRICA [Suspect]
     Active Substance: PREGABALIN
     Indication: DYSPEPSIA
     Dosage: UNK
     Dates: start: 2009

REACTIONS (4)
  - Weight decreased [Unknown]
  - Drug effect incomplete [Unknown]
  - Therapeutic response unexpected [Not Recovered/Not Resolved]
  - Pre-existing condition improved [Not Recovered/Not Resolved]

NARRATIVE: CASE EVENT DATE: 200907
